FAERS Safety Report 5162798-7 (Version None)
Quarter: 2006Q4

REPORT INFORMATION
  Report Type: 
  Country: None (occurrence: None)
  Receive Date: 20061121
  Receipt Date: 20061108
  Transmission Date: 20070319
  Serious: Yes (Other)
  Sender: FDA-Public Use
  Company Number: US-2006-034908

PATIENT
  Age: 55 Year
  Sex: Female

DRUGS (4)
  1. MAGNEVIST [Suspect]
     Indication: NUCLEAR MAGNETIC RESONANCE IMAGING
     Dosage: 15 M L, 1 DOSE
     Dates: start: 20040701, end: 20040701
  2. OMNISCAN [Concomitant]
  3. ULTRAVIST (PHARMACY BULK) [Concomitant]
  4. NEURONTIN [Concomitant]

REACTIONS (4)
  - DIALYSIS [None]
  - FISTULA REPAIR [None]
  - NEPHROGENIC FIBROSING DERMOPATHY [None]
  - VASCULAR ACCESS COMPLICATION [None]
